FAERS Safety Report 5376336-7 (Version None)
Quarter: 2007Q3

REPORT INFORMATION
  Report Type: 
  Country: None (occurrence: None)
  Receive Date: 20070702
  Receipt Date: 20070622
  Transmission Date: 20080115
  Serious: Yes (Other)
  Sender: FDA-Public Use
  Company Number: US-PFIZER INC-2007031445

PATIENT
  Sex: Male
  Weight: 82 kg

DRUGS (10)
  1. TIKOSYN [Suspect]
     Indication: ATRIAL FIBRILLATION
     Route: 048
     Dates: start: 20070206
  2. ACETAMINOPHEN [Concomitant]
  3. VITAMIN CAP [Concomitant]
  4. FIBRE, DIETARY [Concomitant]
  5. ACETYLSALICYLIC ACID SRT [Concomitant]
  6. PEPCID [Concomitant]
  7. METOPROLOL SUCCINATE [Concomitant]
  8. LEVOTHYROXINE SODIUM [Concomitant]
  9. SIMVASTATIN [Concomitant]
  10. WARFARIN SODIUM [Concomitant]

REACTIONS (2)
  - MUSCLE SPASMS [None]
  - SPINAL COLUMN STENOSIS [None]
